FAERS Safety Report 8876050 (Version 3)
Quarter: 2013Q1

REPORT INFORMATION
  Report Type: Spontaneous
  Country: US (occurrence: US)
  Receive Date: 20121030
  Receipt Date: 20130114
  Transmission Date: 20140127
  Serious: No
  Sender: FDA-Public Use
  Company Number: US-009507513-1210USA009859

PATIENT
  Sex: Male

DRUGS (7)
  1. VICTRELIS [Suspect]
     Indication: HEPATITIS C
     Dosage: UNK
     Route: 048
     Dates: start: 2011, end: 2011
  2. VICTRELIS [Suspect]
     Dosage: 800 MG, TID
     Route: 048
     Dates: start: 20120702, end: 2012
  3. PEGASYS [Suspect]
     Dosage: UNK
     Dates: start: 2011, end: 2011
  4. PEGASYS [Suspect]
     Dosage: UNK
     Dates: start: 20120702, end: 2012
  5. RIBASPHERE [Suspect]
     Dosage: UNK
     Dates: start: 2011, end: 2011
  6. RIBASPHERE [Suspect]
     Dosage: UNK
     Dates: start: 20120702, end: 2012
  7. SEROQUEL [Concomitant]

REACTIONS (4)
  - No therapeutic response [Unknown]
  - Nausea [Unknown]
  - Dizziness [Unknown]
  - Abdominal pain upper [Unknown]
